FAERS Safety Report 7828775-X (Version None)
Quarter: 2011Q4

REPORT INFORMATION
  Report Type: 
  Country: None (occurrence: None)
  Receive Date: 20111020
  Receipt Date: 20110816
  Transmission Date: 20120403
  Serious: No
  Sender: FDA-Public Use
  Company Number: US-MYLANLABS-2011S1017141

PATIENT
  Age: 70 Year
  Sex: Female

DRUGS (3)
  1. CARVEDILOL [Suspect]
     Indication: BLOOD PRESSURE INCREASED
     Route: 048
     Dates: start: 20101201, end: 20110201
  2. SYNTHROID [Concomitant]
     Indication: THYROID DISORDER
  3. PREVACID [Concomitant]
     Indication: DYSPEPSIA

REACTIONS (2)
  - PRURITUS GENERALISED [None]
  - REACTION TO DRUG EXCIPIENTS [None]
